FAERS Safety Report 8772202 (Version 2)
Quarter: 2013Q2

REPORT INFORMATION
  Report Type: Spontaneous
  Country: US (occurrence: US)
  Receive Date: 20120906
  Receipt Date: 20130429
  Transmission Date: 20140414
  Serious: No
  Sender: FDA-Public Use
  Company Number: US-BIOGENIDEC-2012BI034166

PATIENT
  Sex: Female

DRUGS (1)
  1. TYSABRI [Suspect]
     Indication: MULTIPLE SCLEROSIS
     Route: 042
     Dates: start: 20071004

REACTIONS (4)
  - Urinary tract infection [Recovered/Resolved]
  - Catheter placement [Unknown]
  - Blood urine present [Recovered/Resolved]
  - Herpes zoster [Recovered/Resolved]
